FAERS Safety Report 8574107-1 (Version None)
Quarter: 2012Q3

REPORT INFORMATION
  Report Type: 
  Country: None (occurrence: None)
  Receive Date: 20120806
  Receipt Date: 20120801
  Transmission Date: 20120928
  Serious: Yes (Hospitalization)
  Sender: FDA-Public Use
  Company Number: PHHY2012GB066546

PATIENT
  Age: 82 Year
  Sex: Female
  Weight: 59 kg

DRUGS (17)
  1. FOLIC ACID [Concomitant]
     Dosage: 5 MG, QD
     Route: 048
  2. OMEPRAZOLE [Concomitant]
     Dosage: 40 MG, BID
  3. ENOXAPARIN [Suspect]
     Dosage: 40 MG, QD
  4. GALANTAMINE HYDROBROMIDE [Suspect]
     Dosage: 8 MG, QD
     Route: 048
     Dates: end: 20120717
  5. STRONTIUM RANELATE [Suspect]
     Dosage: 2 MG, QD
  6. MOVIPREP [Concomitant]
     Dosage: 1 DF, BID
     Route: 048
  7. ACETAMINOPHEN [Concomitant]
     Dosage: 1 G
     Route: 048
  8. BUMETANIDE [Concomitant]
     Dosage: 1 MG, QD
     Route: 048
  9. COLECALCIFEROL [Concomitant]
     Dosage: 40000 IU, UNK
     Route: 048
  10. ZOPICLONE [Concomitant]
     Dosage: 3.75 MG, QD
     Route: 048
  11. ADCAL [Concomitant]
     Dosage: 2 DF, QD
     Route: 048
  12. GALANTAMINE HYDROBROMIDE [Suspect]
     Indication: DEMENTIA
     Dosage: 10 MG, QD
     Route: 048
  13. DIGOXIN [Concomitant]
     Dosage: 62.5 UG, QD
     Route: 048
  14. FERROUS FUMARATE [Concomitant]
     Dosage: 210 MG, TID
     Route: 048
  15. NITROFURANTOIN [Concomitant]
     Dosage: 50 MG, UNK
     Route: 048
  16. BISOPROLOL FUMARATE [Concomitant]
     Dosage: 1.25 MG, QD
     Route: 048
  17. ONDANSETRON [Concomitant]
     Dosage: 4 MG, QD
     Route: 042

REACTIONS (3)
  - HAEMORRHAGE [None]
  - HAEMOGLOBIN DECREASED [None]
  - ULCER [None]
